FAERS Safety Report 10939667 (Version 3)
Quarter: 2015Q2

REPORT INFORMATION
  Report Type: Spontaneous
  Country: US (occurrence: US)
  Receive Date: 20150322
  Receipt Date: 20150605
  Transmission Date: 20150821
  Serious: Yes (Other)
  Sender: FDA-Public Use
  Company Number: US-JNJFOC-20141110291

PATIENT
  Sex: Male

DRUGS (7)
  1. SEROQUEL [Suspect]
     Active Substance: QUETIAPINE FUMARATE
     Indication: AUTISM
     Route: 065
  2. RISPERDAL [Suspect]
     Active Substance: RISPERIDONE
     Indication: POSTPARTUM DEPRESSION
     Route: 048
  3. RISPERDAL [Suspect]
     Active Substance: RISPERIDONE
     Indication: AUTISM
     Route: 048
  4. RISPERDAL [Suspect]
     Active Substance: RISPERIDONE
     Indication: AUTISM
     Route: 048
     Dates: start: 2000, end: 2002
  5. RISPERDAL [Suspect]
     Active Substance: RISPERIDONE
     Indication: POSTPARTUM DEPRESSION
     Route: 048
     Dates: start: 2000, end: 2002
  6. RISPERDAL [Suspect]
     Active Substance: RISPERIDONE
     Indication: POSTPARTUM DEPRESSION
     Route: 048
  7. RISPERDAL [Suspect]
     Active Substance: RISPERIDONE
     Indication: AUTISM
     Route: 048

REACTIONS (5)
  - Weight increased [Unknown]
  - Gynaecomastia [Recovering/Resolving]
  - Emotional distress [Unknown]
  - Tardive dyskinesia [Unknown]
  - Emotional disorder [Unknown]
